FAERS Safety Report 4626135-6 (Version None)
Quarter: 2005Q1

REPORT INFORMATION
  Report Type: 
  Country: None (occurrence: None)
  Receive Date: 20050330
  Receipt Date: 20050316
  Transmission Date: 20050727
  Serious: Yes (Hospitalization, Other)
  Sender: FDA-Public Use
  Company Number: USA050393344

PATIENT
  Age: 61 Year
  Sex: Female
  Weight: 105 kg

DRUGS (4)
  1. HUMALOG [Suspect]
     Indication: DIABETES MELLITUS
     Dosage: 80 U DAY
     Dates: start: 20010101
  2. HUMULIN-HUMAN INSULIN (RDNA): 30% REGULAR, 70% NPH (LI [Suspect]
     Indication: DIABETES MELLITUS
  3. FUROSEMIDE [Concomitant]
  4. LANOXIN [Concomitant]

REACTIONS (10)
  - ANGINA PECTORIS [None]
  - BLOOD GLUCOSE FLUCTUATION [None]
  - CARDIAC STRESS TEST ABNORMAL [None]
  - DYSPNOEA [None]
  - OEDEMA PERIPHERAL [None]
  - PHARMACEUTICAL PRODUCT COMPLAINT [None]
  - POSTOPERATIVE INFECTION [None]
  - SKIN HAEMORRHAGE [None]
  - THERAPY NON-RESPONDER [None]
  - TRIPLE VESSEL BYPASS GRAFT [None]
